FAERS Safety Report 9546536 (Version 1)
Quarter: 2013Q3

REPORT INFORMATION
  Report Type: Spontaneous
  Country: AU (occurrence: AU)
  Receive Date: 20130923
  Receipt Date: 20130923
  Transmission Date: 20140515
  Serious: Yes (Other)
  Sender: FDA-Public Use
  Company Number: AU-ROCHE-1277621

PATIENT
  Sex: Male

DRUGS (7)
  1. MYCOPHENOLATE MOFETIL [Suspect]
     Indication: ANTI-NEUTROPHIL CYTOPLASMIC ANTIBODY POSITIVE VASCULITIS
     Route: 065
  2. MYCOPHENOLATE MOFETIL [Suspect]
     Indication: GRANULOMATOSIS WITH POLYANGIITIS
  3. AZATHIOPRINE [Suspect]
     Indication: ANTI-NEUTROPHIL CYTOPLASMIC ANTIBODY POSITIVE VASCULITIS
     Route: 065
  4. AZATHIOPRINE [Suspect]
     Indication: GRANULOMATOSIS WITH POLYANGIITIS
  5. PREDNISONE [Suspect]
     Indication: ANTI-NEUTROPHIL CYTOPLASMIC ANTIBODY POSITIVE VASCULITIS
     Route: 065
  6. PREDNISONE [Suspect]
     Indication: GRANULOMATOSIS WITH POLYANGIITIS
  7. CYCLOPHOSPHAMIDE [Concomitant]

REACTIONS (2)
  - Anti-neutrophil cytoplasmic antibody positive vasculitis [Not Recovered/Not Resolved]
  - Granulomatosis with polyangiitis [Not Recovered/Not Resolved]
